FAERS Safety Report 7703756-5 (Version None)
Quarter: 2011Q3

REPORT INFORMATION
  Report Type: 
  Country: None (occurrence: None)
  Receive Date: 20110823
  Receipt Date: 20110816
  Transmission Date: 20111222
  Serious: Yes (Hospitalization, Other)
  Sender: FDA-Public Use
  Company Number: US-JNJFOC-20110808855

PATIENT
  Sex: Male
  Weight: 74.84 kg

DRUGS (3)
  1. DURAGESIC-100 [Suspect]
     Indication: BACK PAIN
     Dosage: 100 UG/HR + 25 UG/HR
     Route: 062
     Dates: start: 19950101, end: 20090101
  2. FENTANYL-100 [Suspect]
     Indication: BACK PAIN
     Dosage: 100 UG/HR + 25 UG/HR
     Route: 062
     Dates: start: 20090101
  3. GLUCOTROL [Concomitant]
     Indication: DIABETES MELLITUS
     Route: 048

REACTIONS (5)
  - MYOCARDIAL INFARCTION [None]
  - CARDIAC DISORDER [None]
  - SHUNT MALFUNCTION [None]
  - PULSE PRESSURE DECREASED [None]
  - CARDIOMYOPATHY [None]
